APPROVED DRUG PRODUCT: BOSENTAN
Active Ingredient: BOSENTAN
Strength: 62.5MG
Dosage Form/Route: TABLET;ORAL
Application: A205173 | Product #001
Applicant: MYLAN PHARMACEUTICALS INC
Approved: Jan 15, 2020 | RLD: No | RS: No | Type: DISCN